FAERS Safety Report 5869568-2 (Version None)
Quarter: 2008Q3

REPORT INFORMATION
  Report Type: 
  Country: None (occurrence: None)
  Receive Date: 20080904
  Receipt Date: 20080827
  Transmission Date: 20090109
  Serious: Yes (Hospitalization, Other)
  Sender: FDA-Public Use
  Company Number: US-AMGEN-QUU276142

PATIENT
  Sex: Female
  Weight: 60.4 kg

DRUGS (13)
  1. ENBREL [Suspect]
     Indication: RHEUMATOID ARTHRITIS
     Route: 058
     Dates: start: 20070408
  2. PLAQUENIL [Concomitant]
     Route: 048
     Dates: start: 20060401
  3. SOMA [Concomitant]
     Route: 048
  4. NORCO [Concomitant]
  5. NEURONTIN [Concomitant]
     Route: 048
  6. MORPHINE [Concomitant]
     Route: 048
  7. CALAN [Concomitant]
     Route: 048
  8. LISINOPRIL [Concomitant]
     Route: 048
  9. CELEXA [Concomitant]
  10. WELLBUTRIN [Concomitant]
  11. LEVOTHYROXINE SODIUM [Concomitant]
     Route: 048
  12. HYDROXYCHLOROQUINE [Concomitant]
     Dates: start: 20060401
  13. VOLTAREN [Concomitant]

REACTIONS (16)
  - BACK PAIN [None]
  - BREAST CANCER [None]
  - CARPAL TUNNEL SYNDROME [None]
  - CHRONIC OBSTRUCTIVE PULMONARY DISEASE [None]
  - CUBITAL TUNNEL SYNDROME [None]
  - FATIGUE [None]
  - HERPES ZOSTER [None]
  - INFLUENZA [None]
  - NODULE [None]
  - ORAL DISORDER [None]
  - PAIN [None]
  - PNEUMONIA [None]
  - PNEUMONIA PRIMARY ATYPICAL [None]
  - PYREXIA [None]
  - RHEUMATOID ARTHRITIS [None]
  - TENDON DISORDER [None]
